FAERS Safety Report 5223898-6 (Version None)
Quarter: 2007Q1

REPORT INFORMATION
  Report Type: 
  Country: None (occurrence: None)
  Receive Date: 20070130
  Receipt Date: 20070124
  Transmission Date: 20070707
  Serious: Yes (Death)
  Sender: FDA-Public Use
  Company Number: 2006AP04612

PATIENT
  Age: 27697 Day
  Sex: Female
  Weight: 37 kg

DRUGS (1)
  1. MARCAINE HYDROCHLORIDE PRESERVATIVE FREE [Suspect]
     Indication: SPINAL ANAESTHESIA
     Route: 037
     Dates: start: 20050412, end: 20050412

REACTIONS (1)
  - SPINAL ANAESTHESIA [None]
